FAERS Safety Report 6608434-1 (Version None)
Quarter: 2010Q1

REPORT INFORMATION
  Report Type: 
  Country: None (occurrence: None)
  Receive Date: 20100301
  Receipt Date: 20100223
  Transmission Date: 20100710
  Serious: Yes (Hospitalization)
  Sender: FDA-Public Use
  Company Number: US-ELI_LILLY_AND_COMPANY-US201002006698

PATIENT
  Sex: Male

DRUGS (3)
  1. HUMALOG [Suspect]
     Dosage: UNK, AS NEEDED
     Dates: start: 20091001
  2. HUMALOG [Suspect]
     Dosage: UNK, AS NEEDED
     Dates: start: 20091001
  3. MEDROL [Concomitant]
     Dosage: 16 MG, DAILY (1/D)

REACTIONS (3)
  - BLOOD GLUCOSE INCREASED [None]
  - HEPATIC FAILURE [None]
  - HEPATITIS C [None]
